FAERS Safety Report 4343586-8 (Version None)
Quarter: 2004Q2

REPORT INFORMATION
  Report Type: 
  Country: None (occurrence: None)
  Receive Date: 20040419
  Receipt Date: 20040405
  Transmission Date: 20050107
  Serious: Yes (Other)
  Sender: FDA-Public Use
  Company Number: 04-115-0787

PATIENT

DRUGS (2)
  1. KETOROLAC INJ., USP (30MG/ML; 1ML), BEN VENUE LABS [Suspect]
  2. DIHIDROERGOTAMINE MESYLATE INJECTION , 1 MG/ML, BVL [Suspect]

REACTIONS (1)
  - MEDICATION ERROR [None]
